FAERS Safety Report 7807475-6 (Version None)
Quarter: 2011Q3

REPORT INFORMATION
  Report Type: 
  Country: None (occurrence: None)
  Receive Date: 20110901
  Receipt Date: 20110316
  Transmission Date: 20111222
  Serious: Yes (Other)
  Sender: FDA-Public Use
  Company Number: 272429USA

PATIENT
  Sex: Male

DRUGS (2)
  1. METOCLOPRAMIDE [Suspect]
  2. METOCLOPRAMIDE [Suspect]

REACTIONS (6)
  - TARDIVE DYSKINESIA [None]
  - EYE MOVEMENT DISORDER [None]
  - MOVEMENT DISORDER [None]
  - EXTRAPYRAMIDAL DISORDER [None]
  - DYSKINESIA [None]
  - TOXICITY TO VARIOUS AGENTS [None]
